FAERS Safety Report 17197730 (Version 1)
Quarter: 2019Q4

REPORT INFORMATION
  Report Type: Spontaneous
  Country: US (occurrence: US)
  Receive Date: 20191224
  Receipt Date: 20191224
  Transmission Date: 20200122
  Serious: No
  Sender: FDA-Public Use
  Company Number: US-TEVA-2019-US-1156172

PATIENT
  Age: 76 Year
  Sex: Female

DRUGS (1)
  1. CLONAZEPAM UNKNOWN MANUFACTURER [Suspect]
     Active Substance: CLONAZEPAM
     Route: 065

REACTIONS (2)
  - Allergic reaction to excipient [Unknown]
  - Pruritus [Unknown]
